FAERS Safety Report 19509618 (Version 1)
Quarter: 2021Q3

REPORT INFORMATION
  Report Type: Report from Study
  Country: US (occurrence: US)
  Receive Date: 20210709
  Receipt Date: 20210709
  Transmission Date: 20211014
  Serious: No
  Sender: FDA-Public Use
  Company Number: US-ACADIA PHARMACEUTICALS INC.-ACA-2021-PIM-002263

PATIENT
  Sex: Male

DRUGS (12)
  1. CITALOPRAM [Concomitant]
     Active Substance: CITALOPRAM HYDROBROMIDE
  2. SELEGILINE [Concomitant]
     Active Substance: SELEGILINE
  3. AMANTADINE. [Concomitant]
     Active Substance: AMANTADINE HYDROCHLORIDE
  4. CLONAZEPAM. [Concomitant]
     Active Substance: CLONAZEPAM
  5. ENTACAPONE. [Concomitant]
     Active Substance: ENTACAPONE
  6. GABAPENTIN. [Concomitant]
     Active Substance: GABAPENTIN
  7. CARBIDOPA. [Concomitant]
     Active Substance: CARBIDOPA
  8. ROPINIROLE. [Concomitant]
     Active Substance: ROPINIROLE
  9. NUPLAZID [Suspect]
     Active Substance: PIMAVANSERIN TARTRATE
     Indication: PARKINSON^S DISEASE
     Dosage: 34 MILLIGRAM, QD
     Route: 048
  10. BUPROPION. [Concomitant]
     Active Substance: BUPROPION
  11. ARICEPT [Concomitant]
     Active Substance: DONEPEZIL HYDROCHLORIDE
  12. DONEPEZIL. [Concomitant]
     Active Substance: DONEPEZIL

REACTIONS (1)
  - Condition aggravated [Not Recovered/Not Resolved]
